FAERS Safety Report 6308895-1 (Version None)
Quarter: 2009Q3

REPORT INFORMATION
  Report Type: 
  Country: None (occurrence: None)
  Receive Date: 20090813
  Receipt Date: 20090316
  Transmission Date: 20100115
  Serious: No
  Sender: FDA-Public Use
  Company Number: US-ALLERGAN-0903504US

PATIENT
  Age: 77 Year
  Sex: Male

DRUGS (6)
  1. COMBIGAN [Suspect]
     Indication: GLAUCOMA
     Route: 047
     Dates: start: 20090309
  2. LEVOTHYROXINE [Concomitant]
     Dosage: 0.1 MG, QD
  3. OMEPRAZOLE [Concomitant]
     Indication: COLONOSCOPY
     Dosage: 20 MG, QD
  4. SIMVASTATIN [Concomitant]
     Dosage: 40 MG, QD
  5. AMLODIPINE [Concomitant]
     Dosage: 10 MG, QD
  6. OXYCODONE [Concomitant]
     Indication: BACK PAIN
     Dosage: 5 MG, PRN

REACTIONS (2)
  - ARTHRALGIA [None]
  - DYSPNOEA [None]
